FAERS Safety Report 19701619 (Version 1)
Quarter: 2021Q3

REPORT INFORMATION
  Report Type: Spontaneous
  Country: US (occurrence: US)
  Receive Date: 20210813
  Receipt Date: 20210813
  Transmission Date: 20211014
  Serious: Yes (Other)
  Sender: FDA-Public Use
  Company Number: US-ANAZAOHEALTH CORPORATION-2115021

PATIENT
  Age: 55 Year
  Sex: Female
  Weight: 62.36 kg

DRUGS (1)
  1. TESTOSTERONE 100MG AND 25MG IMPLANTABLE PELLETS [Suspect]
     Active Substance: TESTOSTERONE
     Indication: HORMONE REPLACEMENT THERAPY
     Route: 058
     Dates: start: 20190701

REACTIONS (1)
  - Cerebrovascular accident [Unknown]
